FAERS Safety Report 7600478-6 (Version None)
Quarter: 2011Q2

REPORT INFORMATION
  Report Type: 
  Country: None (occurrence: None)
  Receive Date: 20110629
  Receipt Date: 20110615
  Transmission Date: 20111010
  Serious: Yes (Other)
  Sender: FDA-Public Use
  Company Number: 2011P1007210

PATIENT
  Age: 56 Year
  Sex: Male

DRUGS (1)
  1. GLYBURIDE [Suspect]
     Indication: DIABETES MELLITUS

REACTIONS (6)
  - PRODUCT QUALITY ISSUE [None]
  - WRONG DRUG ADMINISTERED [None]
  - PRODUCT LABEL ISSUE [None]
  - BLOOD GLUCOSE DECREASED [None]
  - MYOCARDIAL INFARCTION [None]
  - PRODUCT PACKAGING ISSUE [None]
